FAERS Safety Report 18187109 (Version 1)
Quarter: 2020Q3

REPORT INFORMATION
  Report Type: Spontaneous
  Country: GB (occurrence: GB)
  Receive Date: 20200824
  Receipt Date: 20200824
  Transmission Date: 20201103
  Serious: Yes (Hospitalization, Other)
  Sender: FDA-Public Use
  Company Number: GB-TEVA-2020-GB-1817911

PATIENT
  Age: 47 Year
  Sex: Female

DRUGS (5)
  1. PARACETAMOL [Concomitant]
     Active Substance: ACETAMINOPHEN
     Indication: PRODUCT USED FOR UNKNOWN INDICATION
  2. SIMVASTATIN. [Concomitant]
     Active Substance: SIMVASTATIN
     Indication: PRODUCT USED FOR UNKNOWN INDICATION
  3. LOSARTAN. [Suspect]
     Active Substance: LOSARTAN
     Indication: HYPERTENSION
     Route: 065
  4. CALCIUM CARBONATE. [Suspect]
     Active Substance: CALCIUM CARBONATE
     Indication: DYSPEPSIA
     Dosage: INGESTING UP TO NINE TABLETS DAILY; TOTAL DOSE: 4500MG
     Route: 048
  5. BUPRENORPHINE. [Concomitant]
     Active Substance: BUPRENORPHINE
     Indication: ANALGESIC THERAPY

REACTIONS (7)
  - Nephrolithiasis [Unknown]
  - Nephrocalcinosis [Unknown]
  - Renal impairment [Unknown]
  - Milk-alkali syndrome [Unknown]
  - Hypercalcaemia [Recovered/Resolved]
  - Stag horn calculus [Unknown]
  - Blood parathyroid hormone decreased [Recovered/Resolved]
